FAERS Safety Report 17848808 (Version 2)
Quarter: 2020Q2

REPORT INFORMATION
  Report Type: Spontaneous
  Country: PT (occurrence: PT)
  Receive Date: 20200602
  Receipt Date: 20200608
  Transmission Date: 20200714
  Serious: Yes (Other)
  Sender: FDA-Public Use
  Company Number: PT-TERSERA THERAPEUTICS LLC-2020TRS001435

PATIENT

DRUGS (2)
  1. ZOLADEX [Suspect]
     Active Substance: GOSERELIN ACETATE
     Indication: BREAST NEOPLASM
     Dosage: 1 DF, EVERY CYCLE. 1 ADMINISTRATION 4/4 WEEKS
     Route: 058
     Dates: start: 20200508
  2. SERTRALINE [Concomitant]
     Active Substance: SERTRALINE HYDROCHLORIDE
     Indication: PRODUCT USED FOR UNKNOWN INDICATION
     Dosage: UNK
     Route: 048

REACTIONS (5)
  - Pruritus [Recovering/Resolving]
  - Erythema [Recovering/Resolving]
  - Feeling hot [Recovering/Resolving]
  - Paraesthesia [Recovering/Resolving]
  - Lip oedema [Recovering/Resolving]

NARRATIVE: CASE EVENT DATE: 20200508
